FAERS Safety Report 7712870-X (Version None)
Quarter: 2011Q3

REPORT INFORMATION
  Report Type: 
  Country: None (occurrence: None)
  Receive Date: 20110826
  Receipt Date: 20110812
  Transmission Date: 20111222
  Serious: Yes (Other)
  Sender: FDA-Public Use
  Company Number: PHHY2011US56340

PATIENT
  Sex: Female

DRUGS (9)
  1. TAXOL [Concomitant]
     Dosage: 4 DF
     Dates: start: 20090409, end: 20090521
  2. FEMARA [Suspect]
     Dosage: UNK UKN, UNK
     Dates: start: 20100915
  3. HERCEPTIN [Concomitant]
     Dosage: UNK UKN, UNK
     Dates: end: 20110117
  4. ARIMIDEX [Concomitant]
     Dosage: UNK UKN, UNK
     Dates: start: 20091208
  5. PROVIGIL [Concomitant]
     Dosage: UNK UKN, UNK
  6. CHEMOTHERAPEUTICS NOS [Concomitant]
  7. FEMARA [Suspect]
     Dosage: 2.5 MG, QD
     Dates: end: 20100903
  8. FEMARA [Suspect]
     Dosage: UNK UKN, UNK
     Dates: start: 20100903, end: 20100915
  9. ADRIAMYCIN PFS [Concomitant]
     Dosage: 4 DF
     Dates: start: 20090212, end: 20090326

REACTIONS (13)
  - MUSCULAR WEAKNESS [None]
  - ANXIETY [None]
  - HEADACHE [None]
  - ASTHENIA [None]
  - DREAMY STATE [None]
  - NASAL CONGESTION [None]
  - OEDEMA PERIPHERAL [None]
  - COUGH [None]
  - SCOLIOSIS [None]
  - ARTHRITIS [None]
  - HOT FLUSH [None]
  - NEUROPATHY PERIPHERAL [None]
  - PAIN [None]
